FAERS Safety Report 8902598 (Version 8)
Quarter: 2015Q1

REPORT INFORMATION
  Report Type: Report from Study
  Country: DE (occurrence: DE)
  Receive Date: 20121112
  Receipt Date: 20150219
  Transmission Date: 20150721
  Serious: Yes (Hospitalization, Disabling, Other)
  Sender: FDA-Public Use
  Company Number: DE-ROCHE-1154047

PATIENT
  Age: 44 Year
  Sex: Male
  Weight: 89 kg

DRUGS (27)
  1. BEVACIZUMAB [Suspect]
     Active Substance: BEVACIZUMAB
     Route: 042
     Dates: start: 20110928, end: 20120606
  2. LEVETIRACETAM. [Suspect]
     Active Substance: LEVETIRACETAM
     Route: 065
     Dates: start: 20121108
  3. TALVOSILEN FORTE [Concomitant]
     Dosage: DOSE:2120/4
     Route: 065
     Dates: start: 201107
  4. FORTECORTIN [Concomitant]
     Active Substance: DEXAMETHASONE
     Route: 065
     Dates: start: 20110725, end: 20110729
  5. DEXAMETASON [Concomitant]
     Active Substance: DEXAMETHASONE
     Route: 065
     Dates: start: 20110620, end: 201107
  6. NEXIUM [Concomitant]
     Active Substance: ESOMEPRAZOLE MAGNESIUM
     Route: 065
     Dates: start: 20120331, end: 2012
  7. MUSCORIL [Concomitant]
     Active Substance: THIOCOLCHICOSIDE
     Route: 065
     Dates: start: 20120331, end: 20120425
  8. THIAMIN [Concomitant]
     Active Substance: THIAMINE
     Route: 065
     Dates: start: 20110620, end: 2011
  9. CIPROFLOXACIN. [Concomitant]
     Active Substance: CIPROFLOXACIN
     Route: 065
     Dates: start: 20120912, end: 20120914
  10. LEVETIRACETAM. [Suspect]
     Active Substance: LEVETIRACETAM
     Indication: EPILEPSY
     Route: 065
     Dates: start: 20110620, end: 20111107
  11. LASIX [Concomitant]
     Active Substance: FUROSEMIDE
     Route: 065
     Dates: start: 201107
  12. VOMEX A [Concomitant]
     Active Substance: DIMENHYDRINATE
     Route: 065
     Dates: start: 20111026, end: 20111026
  13. IRINOTECAN [Suspect]
     Active Substance: IRINOTECAN
     Indication: BRAIN NEOPLASM MALIGNANT
     Dosage: LAST DOSE PRIOR TO SAE WAS TAKEN ON 23/NOV/2011.
     Route: 042
     Dates: start: 20111013, end: 20111026
  14. PANTOPRAZOLE [Concomitant]
     Active Substance: PANTOPRAZOLE SODIUM
     Route: 065
     Dates: end: 2011
  15. IBUPROFEN. [Concomitant]
     Active Substance: IBUPROFEN
     Route: 065
     Dates: start: 20120331, end: 20120425
  16. KELTICAN (GERMANY) [Concomitant]
     Route: 065
     Dates: start: 20120420, end: 2012
  17. BEVACIZUMAB [Suspect]
     Active Substance: BEVACIZUMAB
     Indication: BRAIN NEOPLASM MALIGNANT
     Dosage: LAST DOSE PRIOR TO SAE WAS TAKEN ON 24/OCT/2012.
     Route: 042
     Dates: start: 20110817, end: 20110914
  18. IRINOTECAN [Suspect]
     Active Substance: IRINOTECAN
     Route: 042
     Dates: start: 20111109
  19. DEXAMETHASON [Concomitant]
     Active Substance: DEXAMETHASONE
     Route: 065
     Dates: start: 20110816, end: 20110928
  20. IRINOTECAN [Suspect]
     Active Substance: IRINOTECAN
     Route: 042
     Dates: start: 20111123
  21. CEFPODOXIME [Concomitant]
     Active Substance: CEFPODOXIME
     Route: 065
     Dates: start: 20121024, end: 20121030
  22. KEVATRIL [Concomitant]
     Active Substance: GRANISETRON HYDROCHLORIDE
     Dosage: 1 AMPULE
     Route: 065
     Dates: start: 20111026, end: 20111026
  23. BEVACIZUMAB [Suspect]
     Active Substance: BEVACIZUMAB
     Dosage: LAST DOSE PRIOR TO SAE WAS TAKEN ON 24/OCT/2012.
     Route: 042
     Dates: start: 20120620, end: 20121024
  24. FORTECORTIN [Concomitant]
     Active Substance: DEXAMETHASONE
     Route: 065
     Dates: start: 201107, end: 20110721
  25. FORTECORTIN [Concomitant]
     Active Substance: DEXAMETHASONE
     Route: 065
     Dates: start: 20110721, end: 20110725
  26. LORAZEPAM. [Concomitant]
     Active Substance: LORAZEPAM
     Route: 065
     Dates: start: 20110620, end: 201107
  27. GRANISETRON [Concomitant]
     Active Substance: GRANISETRON
     Route: 065
     Dates: start: 20111109, end: 20111109

REACTIONS (2)
  - Seizure [Recovering/Resolving]
  - Cerebrovascular accident [Recovered/Resolved with Sequelae]

NARRATIVE: CASE EVENT DATE: 20121108
